FAERS Safety Report 9364209 (Version 1)
Quarter: 2013Q2

REPORT INFORMATION
  Report Type: Spontaneous
  Country: CH (occurrence: CH)
  Receive Date: 20130624
  Receipt Date: 20130624
  Transmission Date: 20140414
  Serious: Yes (Other)
  Sender: FDA-Public Use
  Company Number: CH-TEVA-412600ISR

PATIENT
  Age: 0 None
  Sex: Male
  Weight: 1.9 kg

DRUGS (7)
  1. ZOLPIDEM [Suspect]
     Indication: PERSONALITY DISORDER
     Dosage: 40 MILLIGRAM DAILY; START/END DATE OF ADMINISTRATION: UNKNOWN
     Route: 064
     Dates: start: 2012
  2. ZOLPIDEM [Suspect]
     Indication: SUICIDE ATTEMPT
  3. SERALIN-MEPHA [Suspect]
     Indication: PERSONALITY DISORDER
     Dosage: 25 MILLIGRAM DAILY; START/ END DATE OF ADMINISTRATION: UNKNOWN
     Route: 064
     Dates: start: 2012
  4. TEMESTA [Suspect]
     Indication: PERSONALITY DISORDER
     Dosage: 4 MILLIGRAM DAILY; START/ END DATE OF ADMINISTRATION: UNKNOWN
     Route: 064
     Dates: start: 2012
  5. TEMESTA [Suspect]
     Indication: SUICIDE ATTEMPT
  6. PRONTOLAX 5 MG [Suspect]
     Indication: SUICIDE ATTEMPT
     Dosage: DOSE UNKNOWN
     Route: 064
     Dates: start: 20120528, end: 20120528
  7. PETHIDINE 25 MG [Suspect]
     Indication: SUICIDE ATTEMPT
     Dosage: DOSE UNKNOWN
     Route: 064
     Dates: start: 20120528, end: 20120528

REACTIONS (3)
  - Exposure during pregnancy [Unknown]
  - Foetal growth restriction [Unknown]
  - Premature baby [Unknown]
